FAERS Safety Report 14099737 (Version 1)
Quarter: 2017Q4

REPORT INFORMATION
  Report Type: Spontaneous
  Country: US (occurrence: US)
  Receive Date: 20171017
  Receipt Date: 20171017
  Transmission Date: 20180321
  Serious: Yes (Hospitalization)
  Sender: FDA-Public Use
  Company Number: US-US WORLDMEDS, LLC-USW201709-001310

PATIENT
  Age: 70 Year
  Sex: Female
  Weight: 49.89 kg

DRUGS (4)
  1. EFFEXOR [Concomitant]
     Active Substance: VENLAFAXINE HYDROCHLORIDE
     Indication: DEPRESSION
  2. XADAGO [Suspect]
     Active Substance: SAFINAMIDE MESYLATE
     Dates: end: 20170906
  3. ATIVAN [Concomitant]
     Active Substance: LORAZEPAM
     Indication: ANXIETY
     Dates: start: 20170902, end: 20170906
  4. SINEMET [Concomitant]
     Active Substance: CARBIDOPA\LEVODOPA
     Indication: PARKINSON^S DISEASE

REACTIONS (12)
  - Drug ineffective [Unknown]
  - Feeling abnormal [Unknown]
  - Balance disorder [Unknown]
  - Muscle spasms [Unknown]
  - Speech disorder [Unknown]
  - Withdrawal syndrome [Not Recovered/Not Resolved]
  - Somnolence [Unknown]
  - Anxiety [Recovered/Resolved]
  - Hypertension [Recovered/Resolved]
  - Panic reaction [Unknown]
  - Mental impairment [Unknown]
  - Insomnia [Unknown]

NARRATIVE: CASE EVENT DATE: 201709
